FAERS Safety Report 13422389 (Version 1)
Quarter: 2017Q2

REPORT INFORMATION
  Report Type: Spontaneous
  Country: US (occurrence: US)
  Receive Date: 20170407
  Receipt Date: 20170407
  Transmission Date: 20170830
  Serious: No
  Sender: FDA-Public Use
  Company Number: None

PATIENT
  Age: 51 Year
  Sex: Female
  Weight: 90.7 kg

DRUGS (1)
  1. HCG [Suspect]
     Active Substance: GONADOTROPHIN, CHORIONIC
     Indication: WEIGHT INCREASED

REACTIONS (3)
  - Skin infection [None]
  - Mycobacterium fortuitum infection [None]
  - Abscess [None]

NARRATIVE: CASE EVENT DATE: 20160701
